FAERS Safety Report 7244027-3 (Version None)
Quarter: 2011Q1

REPORT INFORMATION
  Report Type: 
  Country: None (occurrence: None)
  Receive Date: 20110125
  Receipt Date: 20110119
  Transmission Date: 20110831
  Serious: Yes (Other)
  Sender: FDA-Public Use
  Company Number: GB-MERCK-1101GBR00086

PATIENT
  Age: 59 Year
  Sex: Male

DRUGS (2)
  1. JANUVIA [Suspect]
     Route: 048
  2. METFORMIN [Concomitant]
     Route: 065

REACTIONS (1)
  - PANCREATIC CARCINOMA [None]
